FAERS Safety Report 8340969 (Version 3)
Quarter: 2013Q2

REPORT INFORMATION
  Report Type: Spontaneous
  Country: US (occurrence: US)
  Receive Date: 20120118
  Receipt Date: 20130415
  Transmission Date: 20140414
  Serious: Yes (Death, Hospitalization)
  Sender: FDA-Public Use
  Company Number: US-ELI_LILLY_AND_COMPANY-US201112002435

PATIENT
  Age: 80 Year
  Sex: Male

DRUGS (20)
  1. FORTEO [Suspect]
     Indication: OSTEOPOROSIS
     Dosage: 20 UG, QD
     Dates: start: 20110331
  2. FORTEO [Suspect]
     Dosage: 20 UG, QD
  3. FORTEO [Suspect]
     Dosage: 20 UG, QD
  4. ORENCIA [Concomitant]
     Dosage: UNK, MONTHLY (1/M)
  5. PLAQUENIL [Concomitant]
  6. ARAVA [Concomitant]
  7. PREDNISONE [Concomitant]
  8. FINASTERIDE [Concomitant]
  9. OMEPRAZOLE [Concomitant]
  10. METOPROLOL TARTRATE [Concomitant]
  11. WARFARIN [Concomitant]
  12. ASPIRIN [Concomitant]
     Dosage: 81 MG, BID
  13. ZYRTEC [Concomitant]
  14. MULTIVITAMIN [Concomitant]
  15. CALCIUM + VITAMIN D [Concomitant]
  16. OMEGA 3 FISH OIL [Concomitant]
  17. TRAMADOL                           /00599201/ [Concomitant]
     Dosage: UNK, PRN
  18. LEFLUNOMIDE [Concomitant]
  19. CALCIUM [Concomitant]
  20. FUROSEMIDE [Concomitant]

REACTIONS (7)
  - Death [Fatal]
  - Atrial fibrillation [Recovered/Resolved]
  - Cardiac failure congestive [Recovered/Resolved]
  - Pneumonia [Recovered/Resolved]
  - Arthritis [Not Recovered/Not Resolved]
  - Joint instability [Unknown]
  - Atelectasis [Unknown]
